FAERS Safety Report 7946528-9 (Version None)
Quarter: 2011Q4

REPORT INFORMATION
  Report Type: 
  Country: None (occurrence: None)
  Receive Date: 20111129
  Receipt Date: 20111118
  Transmission Date: 20120403
  Serious: Yes (Death)
  Sender: FDA-Public Use
  Company Number: US-BAXTER-2011BH035858

PATIENT
  Sex: Male

DRUGS (1)
  1. DIANEAL [Suspect]
     Indication: PERITONEAL DIALYSIS
     Route: 033
     Dates: end: 20111102

REACTIONS (4)
  - CARDIAC ARREST [None]
  - CARDIOMYOPATHY [None]
  - PULMONARY OEDEMA [None]
  - POST PROCEDURAL COMPLICATION [None]
